FAERS Safety Report 7280904-5 (Version None)
Quarter: 2011Q1

REPORT INFORMATION
  Report Type: 
  Country: None (occurrence: None)
  Receive Date: 20110207
  Receipt Date: 20110207
  Transmission Date: 20110831
  Serious: No
  Sender: FDA-Public Use
  Company Number: None

PATIENT

DRUGS (1)
  1. TRIADS GROUP ALCOHOL SWABS - 4 BOXES [Suspect]

REACTIONS (2)
  - PRODUCT CONTAMINATION MICROBIAL [None]
  - BACILLUS INFECTION [None]
